FAERS Safety Report 16249328 (Version 2)
Quarter: 2019Q2

REPORT INFORMATION
  Report Type: Spontaneous
  Country: CA (occurrence: CA)
  Receive Date: 20190429
  Receipt Date: 20190508
  Transmission Date: 20190711
  Serious: Yes (Other)
  Sender: FDA-Public Use
  Company Number: CA-ORION CORPORATION ORION PHARMA-TREX2019-1280

PATIENT
  Age: 72 Year
  Sex: Female

DRUGS (2)
  1. PANTOLOC [Concomitant]
     Active Substance: PANTOPRAZOLE SODIUM
     Route: 048
  2. METHOTREXATE (TRADE NAME UNKNOWN) [Suspect]
     Active Substance: METHOTREXATE
     Indication: PRODUCT USED FOR UNKNOWN INDICATION
     Route: 065

REACTIONS (9)
  - Hepatic enzyme increased [Unknown]
  - Haematochezia [Unknown]
  - Pyrexia [Recovered/Resolved]
  - Drug intolerance [Unknown]
  - Colitis ulcerative [Unknown]
  - Cough [Not Recovered/Not Resolved]
  - Fatigue [Not Recovered/Not Resolved]
  - Pneumonia [Unknown]
  - Diarrhoea [Unknown]
